FAERS Safety Report 6172376-9 (Version None)
Quarter: 2009Q2

REPORT INFORMATION
  Report Type: 
  Country: None (occurrence: None)
  Receive Date: 20090424
  Receipt Date: 20090120
  Transmission Date: 20091009
  Serious: No
  Sender: FDA-Public Use
  Company Number: ALL1-2009-00156

PATIENT
  Age: 7 Year
  Sex: Male
  Weight: 23.6 kg

DRUGS (2)
  1. VYVANSE [Suspect]
     Indication: ATTENTION DEFICIT/HYPERACTIVITY DISORDER
     Dosage: 20 MG, 1X/DAY:QD, ORAL
     Route: 048
     Dates: start: 20081001
  2. VITAMINS NOS [Concomitant]

REACTIONS (2)
  - MUSCLE SPASMS [None]
  - TIC [None]
